FAERS Safety Report 20876214 (Version 1)
Quarter: 2022Q2

REPORT INFORMATION
  Report Type: Spontaneous
  Country: PL (occurrence: PL)
  Receive Date: 20220526
  Receipt Date: 20220526
  Transmission Date: 20220721
  Serious: Yes (Other)
  Sender: FDA-Public Use
  Company Number: None

PATIENT
  Age: 64 Year
  Sex: Male
  Weight: 57 kg

DRUGS (4)
  1. OXALIPLATIN [Suspect]
     Active Substance: OXALIPLATIN
     Indication: Colon cancer
     Dosage: 144, OXALIPLATIN 100 MG
     Route: 042
     Dates: start: 20180528
  2. OXALIPLATIN [Suspect]
     Active Substance: OXALIPLATIN
     Dosage: 144,OXALIPLATIN 50 MG
     Route: 042
     Dates: start: 20180528
  3. FLUOROURACIL [Suspect]
     Active Substance: FLUOROURACIL
     Indication: Colon cancer
     Dosage: 1786
     Route: 042
     Dates: start: 20180528
  4. VECTIBIX [Concomitant]
     Active Substance: PANITUMUMAB
     Indication: Colon cancer
     Dosage: 366
     Route: 042
     Dates: start: 20180528

REACTIONS (3)
  - Neutropenia [Recovering/Resolving]
  - Asthenia [Recovering/Resolving]
  - Weight decreased [Recovering/Resolving]

NARRATIVE: CASE EVENT DATE: 20180723
